FAERS Safety Report 8113338-1 (Version None)
Quarter: 2012Q1

REPORT INFORMATION
  Report Type: 
  Country: None (occurrence: None)
  Receive Date: 20120203
  Receipt Date: 20120130
  Transmission Date: 20120608
  Serious: Yes (Death, Hospitalization)
  Sender: FDA-Public Use
  Company Number: PHHY2009JP30847

PATIENT
  Sex: Female

DRUGS (4)
  1. VALSARTAN [Suspect]
     Dosage: 80 MG, QD
     Route: 048
     Dates: start: 20071018
  2. SUNRYTHM [Concomitant]
     Dosage: 150 MG, UNK
     Route: 048
     Dates: start: 20070628
  3. MIGLITOL [Concomitant]
     Dosage: 150 MG, UNK
     Route: 048
     Dates: start: 20070628
  4. HUMALOG [Concomitant]
     Dosage: 30 IU, UNK
     Route: 058
     Dates: start: 20070628

REACTIONS (4)
  - BLOOD PRESSURE DIASTOLIC DECREASED [None]
  - BRADYCARDIA [None]
  - VENTRICULAR FIBRILLATION [None]
  - LOSS OF CONSCIOUSNESS [None]
